FAERS Safety Report 6819482-0 (Version None)
Quarter: 2010Q3

REPORT INFORMATION
  Report Type: 
  Country: None (occurrence: None)
  Receive Date: 20100707
  Receipt Date: 20100623
  Transmission Date: 20110219
  Serious: Yes (Other)
  Sender: FDA-Public Use
  Company Number: PHHY2010ES34939

PATIENT
  Age: 49 Year
  Sex: Female

DRUGS (4)
  1. TASIGNA [Suspect]
     Indication: CHRONIC MYELOID LEUKAEMIA
     Dosage: 400 MG, BID
     Route: 048
     Dates: start: 20100219
  2. TASIGNA [Suspect]
     Dosage: 200 MG, BID
     Route: 048
  3. IDALPREM [Concomitant]
     Indication: ANXIETY
  4. DOBUPAL [Concomitant]
     Indication: DEPRESSION

REACTIONS (4)
  - ALANINE AMINOTRANSFERASE INCREASED [None]
  - ASPARTATE AMINOTRANSFERASE INCREASED [None]
  - HEPATOTOXICITY [None]
  - TRANSAMINASES INCREASED [None]
